FAERS Safety Report 9912222 (Version 1)
Quarter: 2014Q1

REPORT INFORMATION
  Report Type: Report from Study
  Country: US (occurrence: US)
  Receive Date: 20140220
  Receipt Date: 20140220
  Transmission Date: 20141002
  Serious: Yes (Other)
  Sender: FDA-Public Use
  Company Number: US-ROCHE-1352266

PATIENT
  Age: 75 Year
  Sex: Female

DRUGS (1)
  1. LUCENTIS [Suspect]
     Indication: PRODUCT USED FOR UNKNOWN INDICATION
     Route: 065

REACTIONS (4)
  - Blindness [Not Recovered/Not Resolved]
  - Hypoacusis [Not Recovered/Not Resolved]
  - Headache [Not Recovered/Not Resolved]
  - Eye swelling [Unknown]
